FAERS Safety Report 22225849 (Version 1)
Quarter: 2023Q2

REPORT INFORMATION
  Report Type: Spontaneous
  Country: US (occurrence: US)
  Receive Date: 20230419
  Receipt Date: 20230419
  Transmission Date: 20230722
  Serious: Yes (Other)
  Sender: FDA-Public Use
  Company Number: US-AMGEN-USASP2023063575

PATIENT
  Age: 67 Year
  Sex: Male

DRUGS (1)
  1. BEVACIZUMAB [Suspect]
     Active Substance: BEVACIZUMAB
     Indication: Retinal vein occlusion
     Dosage: 1.25 MILLIGRAM

REACTIONS (4)
  - Retinal haemorrhage [Unknown]
  - Epiretinal membrane [Unknown]
  - Macular oedema [Unknown]
  - Off label use [Unknown]
